FAERS Safety Report 4354785-3 (Version None)
Quarter: 2004Q2

REPORT INFORMATION
  Report Type: 
  Country: None (occurrence: None)
  Receive Date: 20040507
  Receipt Date: 20040422
  Transmission Date: 20050107
  Serious: Yes (Hospitalization)
  Sender: FDA-Public Use
  Company Number: US-MERCK-0404USA02010

PATIENT
  Age: 79 Year
  Sex: Female

DRUGS (11)
  1. [THERAPY UNSPECIFIED] [Concomitant]
     Route: 065
  2. TYLENOL W/ CODEINE [Concomitant]
     Route: 065
  3. FOSAMAX [Concomitant]
     Route: 048
  4. CALCIUM (UNSPECIFIED) [Concomitant]
     Route: 065
  5. CATAPRES-TTS-1 [Concomitant]
     Route: 065
  6. HYDRODIURIL [Concomitant]
     Route: 048
  7. SYNTHROID [Concomitant]
     Route: 065
  8. PROTONIX [Concomitant]
     Route: 048
  9. ZOCOR [Suspect]
     Route: 048
     Dates: start: 20021001, end: 20031001
  10. VERAPAMIL [Concomitant]
     Route: 065
  11. VITAMIN D (UNSPECIFIED) [Concomitant]
     Route: 065

REACTIONS (18)
  - BACTERIA URINE [None]
  - BLOOD URINE PRESENT [None]
  - COLITIS ISCHAEMIC [None]
  - DEHYDRATION [None]
  - FALL [None]
  - GASTROINTESTINAL HAEMORRHAGE [None]
  - HYPOCALCAEMIA [None]
  - HYPOKALAEMIA [None]
  - HYPOXIA [None]
  - LEUKOCYTOSIS [None]
  - NAUSEA [None]
  - OXYGEN SATURATION DECREASED [None]
  - PROTEIN URINE PRESENT [None]
  - RENAL FAILURE ACUTE [None]
  - RHABDOMYOLYSIS [None]
  - VENTRICULAR TACHYCARDIA [None]
  - VOMITING [None]
  - VOMITING PROJECTILE [None]
